FAERS Safety Report 9914721 (Version 1)
Quarter: 2014Q1

REPORT INFORMATION
  Report Type: Spontaneous
  Country: NL (occurrence: NL)
  Receive Date: 20140220
  Receipt Date: 20140220
  Transmission Date: 20141002
  Serious: Yes (Other)
  Sender: FDA-Public Use
  Company Number: NL-PFIZER INC-2014050167

PATIENT
  Age: 56 Year
  Sex: Male
  Weight: 72 kg

DRUGS (3)
  1. CHAMPIX [Suspect]
     Indication: SMOKING CESSATION THERAPY
     Dosage: 2 MG, 2X/DAY
     Dates: start: 20131109
  2. TRAMADOL [Concomitant]
     Dosage: 100 MG, 3X/DAY
     Dates: start: 20040101
  3. LYRICA [Concomitant]
     Dosage: 150 MG, 2X/DAY
     Dates: start: 20120201

REACTIONS (1)
  - Haematochezia [Recovered/Resolved with Sequelae]
